FAERS Safety Report 7563119-2 (Version None)
Quarter: 2011Q2

REPORT INFORMATION
  Report Type: 
  Country: None (occurrence: None)
  Receive Date: 20110615
  Receipt Date: 20110602
  Transmission Date: 20111010
  Serious: Yes (Hospitalization)
  Sender: FDA-Public Use
  Company Number: UTC-006279

PATIENT
  Age: 53 Year
  Sex: Female

DRUGS (1)
  1. TYVASO [Suspect]
     Dosage: 216 MCG (54 MCG, 4 IN 1 D), INHALATION 24 MCG (12 MCG, 2 IN 1 D), INHALATION
     Route: 055
     Dates: start: 20091101

REACTIONS (5)
  - CONDITION AGGRAVATED [None]
  - HERPES ZOSTER [None]
  - ABDOMINAL PAIN [None]
  - CHEST PAIN [None]
  - DRUG INTOLERANCE [None]
